FAERS Safety Report 14454738 (Version 4)
Quarter: 2018Q3

REPORT INFORMATION
  Report Type: Spontaneous
  Country: US (occurrence: US)
  Receive Date: 20180129
  Receipt Date: 20180911
  Transmission Date: 20181010
  Serious: Yes (Hospitalization, Other)
  Sender: FDA-Public Use
  Company Number: US-DSJP-DSU-2017-146783

PATIENT

DRUGS (5)
  1. BENICAR HCT [Suspect]
     Active Substance: HYDROCHLOROTHIAZIDE\OLMESARTAN MEDOXOMIL
     Indication: HYPERTENSION
     Dosage: 40/25 MG, QD
     Route: 048
     Dates: start: 20070101, end: 20170201
  2. MAGNESIUM [Suspect]
     Active Substance: MAGNESIUM
     Indication: PRODUCT USED FOR UNKNOWN INDICATION
     Dosage: UNK
  3. BENICAR [Suspect]
     Active Substance: OLMESARTAN MEDOXOMIL
     Indication: HYPERTENSION
     Dosage: 40 MG, HALF TABLET DAILY
     Route: 048
     Dates: start: 20070101, end: 20170201
  4. BENICAR [Suspect]
     Active Substance: OLMESARTAN MEDOXOMIL
     Dosage: 40 MG, QD
     Route: 048
     Dates: start: 20070101, end: 20170201
  5. BENICAR [Suspect]
     Active Substance: OLMESARTAN MEDOXOMIL
     Dosage: 20 MG,QD
     Dates: start: 20070101, end: 20170201

REACTIONS (11)
  - Irritable bowel syndrome [Not Recovered/Not Resolved]
  - Diverticulum [Unknown]
  - Drug administration error [Unknown]
  - Gastroenteritis [Recovering/Resolving]
  - Hiatus hernia [Unknown]
  - Diarrhoea [Recovered/Resolved]
  - Syncope [Not Recovered/Not Resolved]
  - Acute kidney injury [Recovered/Resolved]
  - Large intestine polyp [Unknown]
  - Haemorrhoids [Unknown]
  - Intestinal ischaemia [Not Recovered/Not Resolved]

NARRATIVE: CASE EVENT DATE: 20080212
